FAERS Safety Report 21996359 (Version 2)
Quarter: 2023Q1

REPORT INFORMATION
  Report Type: Report from Study
  Country: IT (occurrence: IT)
  Receive Date: 20230215
  Receipt Date: 20230323
  Transmission Date: 20230418
  Serious: Yes (Hospitalization, Congenital Anomaly, Other)
  Sender: FDA-Public Use
  Company Number: IT-GLAXOSMITHKLINE-IT2023GSK021698

PATIENT

DRUGS (1)
  1. BELIMUMAB [Suspect]
     Active Substance: BELIMUMAB
     Indication: Systemic lupus erythematosus
     Dosage: UNK
     Route: 064

REACTIONS (7)
  - Urinary tract infection neonatal [Unknown]
  - Sepsis neonatal [Unknown]
  - Congenital pyelocaliectasis [Unknown]
  - Ureteric dilatation [Unknown]
  - Urosepsis [Unknown]
  - Premature baby [Unknown]
  - Foetal exposure during pregnancy [Unknown]
